FAERS Safety Report 8184347-1 (Version None)
Quarter: 2012Q1

REPORT INFORMATION
  Report Type: 
  Country: None (occurrence: None)
  Receive Date: 20120305
  Receipt Date: 20120221
  Transmission Date: 20120608
  Serious: Yes (Other)
  Sender: FDA-Public Use
  Company Number: US-ELI_LILLY_AND_COMPANY-US201202006321

PATIENT
  Sex: Female
  Weight: 94.966 kg

DRUGS (6)
  1. CYMBALTA [Suspect]
     Indication: FIBROMYALGIA
     Dosage: 60 MG, QD
     Route: 048
     Dates: start: 20080101
  2. FLEXERIL [Concomitant]
     Indication: MUSCLE SPASMS
     Dosage: 10 MG, TID
     Route: 048
     Dates: start: 20080101
  3. LEVOTHYROXINE SODIUM [Concomitant]
     Indication: THYROID DISORDER
     Dosage: 0.137 UG, QD
     Route: 048
     Dates: start: 20060101
  4. CHANTIX [Concomitant]
     Indication: SMOKING CESSATION THERAPY
     Dosage: 0.5 MG, QD
     Route: 048
     Dates: start: 20120130, end: 20120131
  5. GABAPENTIN [Concomitant]
     Indication: NERVE INJURY
     Dosage: 800 MG, TID
     Dates: start: 20060101
  6. ACETAMINOPHEN AND HYDROCODONE BITARTRATE [Concomitant]
     Indication: PAIN
     Dosage: 2 DF, TID
     Route: 048
     Dates: start: 20060101

REACTIONS (3)
  - MYALGIA [None]
  - MEMORY IMPAIRMENT [None]
  - NAUSEA [None]
